FAERS Safety Report 4721301-3 (Version None)
Quarter: 2005Q3

REPORT INFORMATION
  Report Type: 
  Country: None (occurrence: None)
  Receive Date: 20050721
  Receipt Date: 20040604
  Transmission Date: 20060218
  Serious: Yes (Hospitalization)
  Sender: FDA-Public Use
  Company Number: US-BRISTOL-MYERS SQUIBB COMPANY-12606109

PATIENT
  Age: 54 Year
  Sex: Female
  Weight: 108 kg

DRUGS (4)
  1. WARFARIN SODIUM [Suspect]
     Indication: CEREBROVASCULAR ACCIDENT
     Route: 048
     Dates: start: 20040322
  2. PLAVIX [Concomitant]
     Dates: start: 20040513
  3. ALBUTEROL [Concomitant]
     Dosage: FOR ^A LONG TIME^
  4. SINGULAIR [Concomitant]
     Dosage: FOR ^A LONG TIME^

REACTIONS (4)
  - CEREBROVASCULAR ACCIDENT [None]
  - CONTUSION [None]
  - HAEMATURIA [None]
  - INTERNATIONAL NORMALISED RATIO ABNORMAL [None]
